FAERS Safety Report 6615917-7 (Version None)
Quarter: 2010Q1

REPORT INFORMATION
  Report Type: 
  Country: None (occurrence: None)
  Receive Date: 20100305
  Receipt Date: 20100223
  Transmission Date: 20100710
  Serious: Yes (Other)
  Sender: FDA-Public Use
  Company Number: GXKR2010GB02220

PATIENT
  Age: 55 Year
  Sex: Female

DRUGS (7)
  1. EPIRUBICIN (NGX) [Suspect]
     Indication: BREAST CANCER
     Dosage: 3 CYCLES, 110 MG
     Route: 065
  2. EPIRUBICIN (NGX) [Suspect]
     Dosage: 100 MG, 3 CYCLES
     Route: 065
  3. FLUOROURACIL [Suspect]
     Indication: BREAST CANCER
     Dosage: 3 CYCLES, 1100 MG
     Route: 065
  4. FLUOROURACIL [Suspect]
     Dosage: 3 CYCLES, 1000 MG
     Route: 065
  5. CYCLOPHOSPHAMIDE [Suspect]
     Indication: BREAST CANCER
     Dosage: 3 CYCLES, 1100 MG
     Route: 065
  6. CYCLOPHOSPHAMIDE [Suspect]
     Dosage: 3 CYCLES, 1000 MG
     Route: 065
  7. RADIOTHERAPY [Concomitant]
     Indication: BREAST CANCER

REACTIONS (1)
  - ACUTE PROMYELOCYTIC LEUKAEMIA [None]
